FAERS Safety Report 14979323 (Version 1)
Quarter: 2018Q2

REPORT INFORMATION
  Report Type: Report from Study
  Country: US (occurrence: US)
  Receive Date: 20180606
  Receipt Date: 20180606
  Transmission Date: 20180711
  Serious: Yes (Hospitalization, Disabling)
  Sender: FDA-Public Use
  Company Number: PHEH2018US020907

PATIENT
  Age: 58 Year
  Sex: Female

DRUGS (1)
  1. SANDOSTATIN LAR DEPOT [Suspect]
     Active Substance: OCTREOTIDE ACETATE
     Indication: PRODUCT USED FOR UNKNOWN INDICATION
     Dosage: 60 MG, UNK
     Route: 065
     Dates: start: 2017

REACTIONS (4)
  - Hepatic cirrhosis [Unknown]
  - Hepatic cancer [Unknown]
  - Splenic neoplasm malignancy unspecified [Unknown]
  - Memory impairment [Unknown]

NARRATIVE: CASE EVENT DATE: 20170822
